FAERS Safety Report 9636862 (Version 3)
Quarter: 2015Q1

REPORT INFORMATION
  Report Type: Report from Study
  Country: US (occurrence: US)
  Receive Date: 20131022
  Receipt Date: 20150101
  Transmission Date: 20150721
  Serious: Yes (Hospitalization, Other)
  Sender: FDA-Public Use
  Company Number: US-BIOGENIDEC-2013BI099858

PATIENT
  Age: 61 Year
  Sex: Female

DRUGS (2)
  1. TECFIDERA [Suspect]
     Active Substance: DIMETHYL FUMARATE
     Indication: MULTIPLE SCLEROSIS
     Route: 048
     Dates: start: 20130902
  2. TECFIDERA [Suspect]
     Active Substance: DIMETHYL FUMARATE
     Indication: MULTIPLE SCLEROSIS
     Route: 048
     Dates: start: 201308, end: 201309

REACTIONS (12)
  - Asthenia [Not Recovered/Not Resolved]
  - Knee operation [Recovered/Resolved]
  - Prinzmetal angina [Recovered/Resolved]
  - Visual impairment [Not Recovered/Not Resolved]
  - Anxiety [Not Recovered/Not Resolved]
  - Chondrocalcinosis pyrophosphate [Recovered/Resolved]
  - Paraesthesia [Not Recovered/Not Resolved]
  - Multiple sclerosis relapse [Recovered/Resolved]
  - Faecal incontinence [Recovered/Resolved]
  - Post procedural infection [Recovered/Resolved]
  - Urinary incontinence [Recovered/Resolved]
  - Gastrooesophageal reflux disease [Unknown]

NARRATIVE: CASE EVENT DATE: 2013
